FAERS Safety Report 8603598 (Version 4)
Quarter: 2012Q4

REPORT INFORMATION
  Report Type: Report from Study
  Country: DE (occurrence: DE)
  Receive Date: 20120607
  Receipt Date: 20121108
  Transmission Date: 20130627
  Serious: Yes (Hospitalization)
  Sender: FDA-Public Use
  Company Number: DE-BAXTER-2012BAX006516

PATIENT
  Age: 69 Year
  Sex: Male
  Weight: 76 kg

DRUGS (27)
  1. ENDOXAN 1G [Suspect]
     Indication: NODULAR (FOLLICULAR) LYMPHOMA
     Route: 042
     Dates: start: 20120119
  2. ENDOXAN 1G [Suspect]
     Route: 042
     Dates: start: 20120504
  3. DOXORUBICIN [Suspect]
     Indication: NODULAR (FOLLICULAR) LYMPHOMA
     Route: 042
     Dates: start: 20120119
  4. DOXORUBICIN [Suspect]
     Route: 042
     Dates: start: 20120501
  5. VINCRISTINE [Suspect]
     Indication: NODULAR (FOLLICULAR) LYMPHOMA
     Route: 042
     Dates: start: 20120119
  6. VINCRISTINE [Suspect]
     Route: 042
     Dates: start: 20120504
  7. PREDNISONE [Suspect]
     Indication: NODULAR (FOLLICULAR) LYMPHOMA
     Route: 048
     Dates: start: 20120118
  8. PREDNISONE [Suspect]
     Route: 048
     Dates: start: 20120508
  9. CEFTAZIDIME [Concomitant]
     Indication: URINARY TRACT INFECTION
     Route: 065
     Dates: start: 20120423, end: 20120427
  10. CEFTAZIDIME [Concomitant]
     Indication: FEVER
  11. ORPHOL [Concomitant]
     Indication: DRUG USE FOR UNKNOWN INDICATION
     Route: 065
  12. OTRIVEN [Concomitant]
     Indication: NASAL MUCOSAL SWELLING
     Route: 065
  13. ALLOPURINOL [Concomitant]
     Indication: UREMIA
     Route: 065
     Dates: start: 20120109
  14. PANTOZOL [Concomitant]
     Indication: GASTRODUODENAL ULCER
     Route: 065
     Dates: start: 20120109
  15. TORASEMIDE [Concomitant]
     Indication: RENAL INSUFFICIENCY
     Route: 065
     Dates: start: 20120116
  16. POTASSIUM CITRATE [Concomitant]
     Indication: DRUG USE FOR UNKNOWN INDICATION
     Route: 065
     Dates: start: 20120116
  17. CIPROFLOXACIN [Concomitant]
     Indication: DRUG USE FOR UNKNOWN INDICATION
     Route: 065
     Dates: start: 20120121
  18. COTRIM FORTE [Concomitant]
     Indication: URINARY TRACT INFECTION
     Route: 065
     Dates: start: 20120121
  19. ACICLOVIR [Concomitant]
     Indication: DRUG USE FOR UNKNOWN INDICATION
     Route: 065
     Dates: start: 20120208
  20. NEULASTA [Concomitant]
     Indication: NEUTROPENIA
     Route: 065
     Dates: start: 20120510, end: 20120510
  21. CLEMASTINE FUMARATE [Concomitant]
     Indication: ALLERGIC REACTION
     Route: 065
     Dates: start: 20120503, end: 20120503
  22. ZOFRAN [Concomitant]
     Indication: NAUSEA
     Route: 065
     Dates: start: 20120504, end: 20120504
  23. ZOFRAN [Concomitant]
     Indication: VOMITING
  24. DEXAMETHASONE [Concomitant]
     Indication: PAIN
     Route: 065
     Dates: start: 20120504, end: 20120504
  25. FORTUM [Concomitant]
     Indication: DRUG USE FOR UNKNOWN INDICATION
     Route: 065
     Dates: start: 20120515, end: 20120524
  26. ROXTHEXAL [Concomitant]
     Indication: DRUG USE FOR UNKNOWN INDICATION
     Route: 065
     Dates: start: 20120516, end: 20120524
  27. CEFTAZIDIM [Concomitant]
     Indication: PNEUMONIA
     Route: 065
     Dates: start: 20120515, end: 20120524

REACTIONS (4)
  - Febrile neutropenia [Recovered/Resolved]
  - Gastritis [Recovered/Resolved]
  - Anaemia [Not Recovered/Not Resolved]
  - Pneumonia [Recovered/Resolved]
